FAERS Safety Report 13033352 (Version 2)
Quarter: 2016Q4

REPORT INFORMATION
  Report Type: Spontaneous
  Country: DE (occurrence: DE)
  Receive Date: 20161216
  Receipt Date: 20161226
  Transmission Date: 20170207
  Serious: Yes (Life-Threatening, Hospitalization)
  Sender: FDA-Public Use
  Company Number: DE-SUN PHARMACEUTICAL INDUSTRIES LTD-2016R1-129447

PATIENT
  Age: 35 Year
  Sex: Female
  Weight: 57 kg

DRUGS (1)
  1. IBUPROFEN. [Suspect]
     Active Substance: IBUPROFEN
     Indication: ANAL FISSURE
     Dosage: 2-3 X 600 MG
     Route: 048
     Dates: start: 20160905, end: 20160930

REACTIONS (1)
  - Subacute hepatic failure [Recovering/Resolving]

NARRATIVE: CASE EVENT DATE: 20161120
